APPROVED DRUG PRODUCT: ERTUGLIFLOZIN
Active Ingredient: ERTUGLIFLOZIN
Strength: 15MG
Dosage Form/Route: TABLET;ORAL
Application: A216842 | Product #002
Applicant: HIKMA PHARMACEUTICALS USA INC
Approved: Jan 21, 2025 | RLD: No | RS: No | Type: DISCN